FAERS Safety Report 8580842 (Version 6)
Quarter: 2013Q4

REPORT INFORMATION
  Report Type: Report from Study
  Country: DE (occurrence: DE)
  Receive Date: 20120525
  Receipt Date: 20131119
  Transmission Date: 20140711
  Serious: Yes (Other)
  Sender: FDA-Public Use
  Company Number: DE-ROCHE-798640

PATIENT
  Age: 45 Year
  Sex: Male
  Weight: 76 kg

DRUGS (8)
  1. RITUXIMAB [Suspect]
     Indication: CHRONIC LYMPHOCYTIC LEUKAEMIA
     Dosage: LAST DOSE:22 AUG 2011, DOSE INTERRUPTED
     Route: 042
     Dates: start: 20110404, end: 20110822
  2. BENDAMUSTINE [Suspect]
     Indication: CHRONIC LYMPHOCYTIC LEUKAEMIA
     Dosage: LAST DOSE:22 AUG 2011, DOSE INTERRUPTED
     Route: 042
  3. OMEPRAZOL [Concomitant]
     Indication: ULCER
     Dosage: ON DEMAND
     Route: 065
     Dates: start: 2000
  4. FENISTIL (GERMANY) [Concomitant]
  5. ZANTIC [Concomitant]
  6. PREDNISOLON [Concomitant]
     Route: 042
  7. KEVATRIL [Concomitant]
     Dosage: 1 AMP
     Route: 065
  8. PARACETAMOL [Concomitant]

REACTIONS (1)
  - Hepatitis toxic [Recovered/Resolved]
